FAERS Safety Report 10196198 (Version 1)
Quarter: 2014Q2

REPORT INFORMATION
  Report Type: Spontaneous
  Country: US (occurrence: None)
  Receive Date: 20140522
  Receipt Date: 20140522
  Transmission Date: 20141212
  Serious: Yes (Hospitalization)
  Sender: FDA-Public Use
  Company Number: 2014SA060821

PATIENT
  Age: 3 Year
  Sex: Male

DRUGS (1)
  1. BENZOCAINE [Suspect]
     Indication: ACCIDENTAL EXPOSURE TO PRODUCT BY CHILD
     Route: 048

REACTIONS (7)
  - Methaemoglobinaemia [None]
  - Accidental exposure to product by child [None]
  - Exposure via ingestion [None]
  - Mental status changes [None]
  - Cyanosis [None]
  - Tachycardia [None]
  - Oxygen saturation decreased [None]
